FAERS Safety Report 4289902-7 (Version None)
Quarter: 2004Q1

REPORT INFORMATION
  Report Type: 
  Country: None (occurrence: None)
  Receive Date: 20040209
  Receipt Date: 20040126
  Transmission Date: 20041129
  Serious: Yes (Other)
  Sender: FDA-Public Use
  Company Number: HQWYE568227JAN04

PATIENT
  Age: 29 Year
  Sex: Female

DRUGS (3)
  1. EFFEXOR [Suspect]
     Indication: ANXIETY
     Dosage: 30-37.5 MG TABLETS (OVERDOSE AMOUNT)
     Route: 048
     Dates: start: 20031220, end: 20031220
  2. EFFEXOR [Suspect]
     Indication: DEPRESSION
     Dosage: 30-37.5 MG TABLETS (OVERDOSE AMOUNT)
     Route: 048
     Dates: start: 20031220, end: 20031220
  3. ADCO-SINAL CO (CODEINE PHOSPHATE/PARACETAMOL/PHENYLPROPANOLAMINE HYDRO [Concomitant]

REACTIONS (8)
  - ABDOMINAL PAIN [None]
  - DIARRHOEA [None]
  - GAMMA-GLUTAMYLTRANSFERASE INCREASED [None]
  - HEPATIC FUNCTION ABNORMAL [None]
  - HEPATOMEGALY [None]
  - MACROCYTOSIS [None]
  - MONOCYTOSIS [None]
  - OVERDOSE [None]
